FAERS Safety Report 20653249 (Version 1)
Quarter: 2022Q1

REPORT INFORMATION
  Report Type: Spontaneous
  Country: US (occurrence: None)
  Receive Date: 20220329
  Receipt Date: 20220329
  Transmission Date: 20220423
  Serious: Yes (Death)
  Sender: FDA-Public Use
  Company Number: None

PATIENT
  Age: 85 Year
  Sex: Female

DRUGS (2)
  1. TOBRAMYCIN [Suspect]
     Active Substance: TOBRAMYCIN
     Indication: Bronchiectasis
     Dosage: 300MG/5ML? INHALE 1 VIAL VIA NEBULIZER TWICE DAILY EVERY OTHER MONTH?
     Route: 055
     Dates: start: 20211007, end: 20220329
  2. CEPHALEXIN [Concomitant]
     Active Substance: CEPHALEXIN

REACTIONS (1)
  - Death [None]

NARRATIVE: CASE EVENT DATE: 20220329
